FAERS Safety Report 6476481-9 (Version None)
Quarter: 2009Q4

REPORT INFORMATION
  Report Type: 
  Country: None (occurrence: None)
  Receive Date: 20091207
  Receipt Date: 20091130
  Transmission Date: 20100525
  Serious: Yes (Hospitalization, Other)
  Sender: FDA-Public Use
  Company Number: US-JNJFOC-20091201246

PATIENT
  Sex: Female
  Weight: 81.65 kg

DRUGS (4)
  1. ELMIRON [Suspect]
     Indication: CYSTITIS INTERSTITIAL
     Route: 048
  2. PRILOSEC [Concomitant]
     Indication: CYSTITIS INTERSTITIAL
     Route: 048
  3. BUPROPION HCL [Concomitant]
     Indication: CYSTITIS INTERSTITIAL
     Route: 048
  4. ATENOLOL [Concomitant]
     Indication: BLOOD PRESSURE
     Route: 048

REACTIONS (1)
  - THROMBOSIS [None]
